FAERS Safety Report 14779434 (Version 1)
Quarter: 2018Q2

REPORT INFORMATION
  Report Type: Spontaneous
  Country: US (occurrence: US)
  Receive Date: 20180419
  Receipt Date: 20180419
  Transmission Date: 20180711
  Serious: No
  Sender: FDA-Public Use
  Company Number: US-009507513-1804USA002529

PATIENT
  Sex: Female
  Weight: 108.84 kg

DRUGS (2)
  1. STROMECTOL [Suspect]
     Active Substance: IVERMECTIN
     Indication: ROSACEA
  2. STROMECTOL [Suspect]
     Active Substance: IVERMECTIN
     Indication: SKIN DISORDER
     Dosage: 8 TABLETS(3MG), ONCE A WEEK FOR 3 DOSES
     Route: 048

REACTIONS (4)
  - Product use in unapproved indication [Unknown]
  - Weight decreased [Not Recovered/Not Resolved]
  - Inappropriate schedule of drug administration [Unknown]
  - Abdominal pain [Recovered/Resolved]
